FAERS Safety Report 21784780 (Version 1)
Quarter: 2022Q4

REPORT INFORMATION
  Report Type: Spontaneous
  Country: US (occurrence: US)
  Receive Date: 20221227
  Receipt Date: 20221227
  Transmission Date: 20230113
  Serious: Yes (Disabling)
  Sender: FDA-Public Use
  Company Number: US-DSJP-DSU-2022-146936

PATIENT
  Sex: Male

DRUGS (1)
  1. SAVAYSA [Suspect]
     Active Substance: EDOXABAN TOSYLATE
     Indication: Product used for unknown indication
     Dosage: 60 MG, UNKNOWN FREQUENCY
     Route: 065

REACTIONS (1)
  - Disability [Not Recovered/Not Resolved]
